FAERS Safety Report 16727348 (Version 1)
Quarter: 2019Q3

REPORT INFORMATION
  Report Type: Spontaneous
  Country: US (occurrence: US)
  Receive Date: 20190822
  Receipt Date: 20190822
  Transmission Date: 20191005
  Serious: No
  Sender: FDA-Public Use
  Company Number: US-SA-2019SA228980

PATIENT
  Sex: Female

DRUGS (2)
  1. BD [HYALURONATE SODIUM] [Concomitant]
  2. KEVZARA [Suspect]
     Active Substance: SARILUMAB
     Dosage: 200 MG, QOW
     Route: 058
     Dates: start: 201903, end: 201908

REACTIONS (1)
  - Drug ineffective [Recovered/Resolved]
